FAERS Safety Report 9367397 (Version 5)
Quarter: 2013Q4

REPORT INFORMATION
  Report Type: Spontaneous
  Country: US (occurrence: US)
  Receive Date: 20130625
  Receipt Date: 20131017
  Transmission Date: 20140711
  Serious: Yes (Hospitalization, Disabling, Other)
  Sender: FDA-Public Use
  Company Number: US-009507513-1205USA02097

PATIENT
  Sex: Female
  Weight: 117.46 kg

DRUGS (8)
  1. FOSAMAX [Suspect]
     Indication: OSTEOPOROSIS
     Dosage: 10 MG, UNK
     Route: 048
     Dates: end: 2011
  2. FOSAMAX [Suspect]
     Dosage: 70 MG, QW
     Route: 048
     Dates: end: 2011
  3. FOSAMAX PLUS D [Suspect]
     Indication: OSTEOPOROSIS
     Dosage: UNK
     Route: 048
     Dates: start: 20000619, end: 200705
  4. FOSAMAX [Suspect]
     Indication: OSTEOPOROSIS
     Route: 048
     Dates: start: 20000619, end: 200705
  5. ALENDRONATE SODIUM [Suspect]
     Indication: OSTEOPOROSIS
     Dosage: UNK
     Dates: start: 20000619, end: 200705
  6. ACTONEL [Concomitant]
     Indication: OSTEOPOROSIS
  7. CALCIUM (UNSPECIFIED) [Concomitant]
  8. VITAMIN D (UNSPECIFIED) [Concomitant]

REACTIONS (49)
  - Femur fracture [Not Recovered/Not Resolved]
  - Open reduction of fracture [Unknown]
  - Open reduction of fracture [Unknown]
  - Femur fracture [Not Recovered/Not Resolved]
  - Fracture nonunion [Unknown]
  - Stress fracture [Not Recovered/Not Resolved]
  - Osteoporosis [Not Recovered/Not Resolved]
  - Low turnover osteopathy [Not Recovered/Not Resolved]
  - Femur fracture [Unknown]
  - Internal fixation of fracture [Unknown]
  - Venous insufficiency [Unknown]
  - Stasis dermatitis [Unknown]
  - Cellulitis [Unknown]
  - Bone graft [Unknown]
  - Medical device removal [Unknown]
  - Anxiety [Unknown]
  - Depression [Unknown]
  - Hyperlipidaemia [Unknown]
  - Tachycardia [Unknown]
  - Fall [Unknown]
  - Electrocardiogram ST segment abnormal [Unknown]
  - Ischaemia [Unknown]
  - Device failure [Unknown]
  - Anaemia [Unknown]
  - Biopsy breast [Unknown]
  - Acute sinusitis [Unknown]
  - Bronchitis [Unknown]
  - Gait disturbance [Not Recovered/Not Resolved]
  - Hypertension [Unknown]
  - Hypothyroidism [Unknown]
  - Paraesthesia [Unknown]
  - Muscle strain [Unknown]
  - Road traffic accident [Unknown]
  - Blood potassium decreased [Unknown]
  - Spinal disorder [Unknown]
  - Ligament sprain [Unknown]
  - Dry skin [Unknown]
  - Impaired healing [Unknown]
  - Foot fracture [Unknown]
  - Foot fracture [Unknown]
  - Skin ulcer [Recovered/Resolved]
  - Back pain [Unknown]
  - Constipation [Unknown]
  - Local swelling [Unknown]
  - Gastrooesophageal reflux disease [Not Recovered/Not Resolved]
  - Headache [Unknown]
  - Musculoskeletal pain [Unknown]
  - Arthralgia [Unknown]
  - Arthralgia [Unknown]
